FAERS Safety Report 8198062-1 (Version None)
Quarter: 2012Q1

REPORT INFORMATION
  Report Type: 
  Country: None (occurrence: None)
  Receive Date: 20120309
  Receipt Date: 20120216
  Transmission Date: 20120608
  Serious: No
  Sender: FDA-Public Use
  Company Number: US-AMGEN-USASP2012007292

PATIENT
  Age: 72 Year
  Sex: Female
  Weight: 61 kg

DRUGS (4)
  1. XGEVA [Suspect]
     Indication: LUNG NEOPLASM MALIGNANT
     Dosage: 120 MG, QMO
     Dates: start: 20120119
  2. TARCEVA [Concomitant]
     Dosage: 100 MG, QD
     Route: 048
     Dates: start: 20120112
  3. AREDIA [Concomitant]
     Dosage: 90 MG, UNK
  4. AREDIA [Concomitant]
     Dosage: 60 MG, UNK

REACTIONS (1)
  - PAIN IN JAW [None]
